FAERS Safety Report 23982298 (Version 1)
Quarter: 2024Q2

REPORT INFORMATION
  Report Type: Other
  Country: US (occurrence: US)
  Receive Date: 20240617
  Receipt Date: 20240617
  Transmission Date: 20240716
  Serious: Yes (Other)
  Sender: FDA-Public Use
  Company Number: US-Nova Laboratories Limited-2158212

PATIENT
  Sex: Male

DRUGS (2)
  1. PURIXAN [Suspect]
     Active Substance: MERCAPTOPURINE
     Indication: Chronic myeloid leukaemia
  2. SPRYCEL [Concomitant]
     Active Substance: DASATINIB

REACTIONS (2)
  - Drug ineffective [Unknown]
  - Off label use [Unknown]
